FAERS Safety Report 5578559-0 (Version None)
Quarter: 2007Q4

REPORT INFORMATION
  Report Type: 
  Country: None (occurrence: None)
  Receive Date: 20071227
  Receipt Date: 20071217
  Transmission Date: 20080405
  Serious: Yes (Other)
  Sender: FDA-Public Use
  Company Number: 430001L07BEL

PATIENT
  Age: 53 Year
  Sex: Female

DRUGS (1)
  1. MITOXANTRONE HCL [Suspect]
     Indication: SECONDARY PROGRESSIVE MULTIPLE SCLEROSIS
     Dosage: 20 MG, 8 IN , INTRAVENOUS
     Route: 042
     Dates: start: 20030101, end: 20040601

REACTIONS (1)
  - ACUTE MYELOID LEUKAEMIA [None]
